FAERS Safety Report 13131416 (Version 3)
Quarter: 2017Q2

REPORT INFORMATION
  Report Type: Spontaneous
  Country: TW (occurrence: TW)
  Receive Date: 20170119
  Receipt Date: 20170623
  Transmission Date: 20170830
  Serious: Yes (Other)
  Sender: FDA-Public Use
  Company Number: TW-PFIZER INC-2017016225

PATIENT
  Age: 69 Year
  Sex: Female
  Weight: 60 kg

DRUGS (5)
  1. EPINEPHRINE. [Concomitant]
     Active Substance: EPINEPHRINE
     Indication: LOCAL ANAESTHESIA
     Dosage: 5 UG/ML, UNK
     Route: 008
  2. BUPIVACAINE HCL [Suspect]
     Active Substance: BUPIVACAINE HYDROCHLORIDE
     Dosage: 15 MG, UNK
     Route: 037
  3. FENTANYL. [Concomitant]
     Active Substance: FENTANYL
     Indication: EPIDURAL ANALGESIA
     Dosage: 1 UG/ML, (INFUSION RATE OF 2ML/H)
  4. ROPIVACAINE [Suspect]
     Active Substance: ROPIVACAINE
     Indication: EPIDURAL ANALGESIA
     Dosage: 1.6 MG/ML, (LOADING DOSE OF 8 ML)
     Route: 008
  5. LIDOCAINE. [Concomitant]
     Active Substance: LIDOCAINE
     Indication: LOCAL ANAESTHESIA
     Dosage: 20 MG/ML,  (TEST DOSE OF 3 ML OF 2% LIDOCAINE 20 MG/ML)
     Route: 008

REACTIONS (2)
  - Neurotoxicity [Recovered/Resolved]
  - Cauda equina syndrome [Recovered/Resolved]
